FAERS Safety Report 10697124 (Version 2)
Quarter: 2015Q1

REPORT INFORMATION
  Report Type: Report from Study
  Country: US (occurrence: US)
  Receive Date: 20150108
  Receipt Date: 20150108
  Transmission Date: 20150721
  Serious: Yes (Hospitalization, Other)
  Sender: FDA-Public Use
  Company Number: US-JNJFOC-20141018594

PATIENT
  Sex: Female

DRUGS (3)
  1. METHOTREXATE [Concomitant]
     Active Substance: METHOTREXATE
     Indication: RHEUMATOID ARTHRITIS
     Route: 065
  2. REMICADE [Suspect]
     Active Substance: INFLIXIMAB
     Indication: PRODUCT USED FOR UNKNOWN INDICATION
     Route: 042
     Dates: start: 2006, end: 201305
  3. TOPIRAMATE. [Concomitant]
     Active Substance: TOPIRAMATE
     Indication: MIGRAINE
     Route: 065
     Dates: start: 201211, end: 201306

REACTIONS (9)
  - Gastrooesophageal reflux disease [Unknown]
  - Pericardial effusion [Recovered/Resolved]
  - Infectious mononucleosis [Recovered/Resolved]
  - Immune system disorder [Unknown]
  - Pleural effusion [Recovered/Resolved]
  - Plasma cell myeloma [Unknown]
  - Periarthritis [Unknown]
  - Pneumonia viral [Recovered/Resolved]
  - Parvovirus infection [Recovered/Resolved]

NARRATIVE: CASE EVENT DATE: 2013
